FAERS Safety Report 12927415 (Version 1)
Quarter: 2016Q4

REPORT INFORMATION
  Report Type: Spontaneous
  Country: US (occurrence: US)
  Receive Date: 20161109
  Receipt Date: 20161109
  Transmission Date: 20170207
  Serious: No
  Sender: FDA-Public Use
  Company Number: US-ALLERGAN-1602296US

PATIENT
  Age: 73 Year
  Sex: Female

DRUGS (3)
  1. SUDAFED [Concomitant]
     Active Substance: PSEUDOEPHEDRINE HYDROCHLORIDE
  2. ALPHAGAN P [Suspect]
     Active Substance: BRIMONIDINE TARTRATE
     Indication: NORMAL TENSION GLAUCOMA
     Dosage: 1 GTT, BID
     Route: 047
     Dates: start: 20150422, end: 201508
  3. CALCIUM + MAGNESIUM + ZINK [Concomitant]
     Dosage: UNK

REACTIONS (7)
  - Off label use [Unknown]
  - Nightmare [Recovered/Resolved]
  - Lip dry [Not Recovered/Not Resolved]
  - Cheilitis [Not Recovered/Not Resolved]
  - Dizziness [Recovered/Resolved]
  - Breath odour [Recovered/Resolved]
  - Fatigue [Recovered/Resolved]

NARRATIVE: CASE EVENT DATE: 2015
